FAERS Safety Report 6860405-6 (Version None)
Quarter: 2010Q3

REPORT INFORMATION
  Report Type: 
  Country: None (occurrence: None)
  Receive Date: 20100720
  Receipt Date: 20100707
  Transmission Date: 20110219
  Serious: Yes (Hospitalization)
  Sender: FDA-Public Use
  Company Number: US-ELI_LILLY_AND_COMPANY-US201007001974

PATIENT
  Age: 43 Year
  Sex: Female

DRUGS (2)
  1. CYMBALTA [Suspect]
     Indication: FIBROMYALGIA
     Dosage: 60 MG, EACH EVENING
     Dates: start: 20090101, end: 20100702
  2. TYLENOL W/ CODEINE NO. 3 [Concomitant]
     Indication: PAIN
     Dosage: UNK, AS NEEDED

REACTIONS (9)
  - ANXIETY [None]
  - DRUG WITHDRAWAL SYNDROME [None]
  - DYSPHAGIA [None]
  - MENTAL IMPAIRMENT [None]
  - NAUSEA [None]
  - OESOPHAGOGASTRIC FUNDOPLASTY [None]
  - PYLOROPLASTY [None]
  - SOCIAL AVOIDANT BEHAVIOUR [None]
  - VOMITING [None]
